FAERS Safety Report 8955837 (Version 1)
Quarter: 2012Q4

REPORT INFORMATION
  Report Type: Spontaneous
  Country: DK (occurrence: None)
  Receive Date: 20121130
  Receipt Date: 20121130
  Transmission Date: 20130627
  Serious: Yes (Hospitalization, Other)
  Sender: FDA-Public Use
  Company Number: 2012MA013627

PATIENT
  Age: 64 Year
  Sex: Female
  Weight: 112.5 kg

DRUGS (8)
  1. IPRATROPIUM BROMIDE [Suspect]
     Dosage: 2 df;
     Route: 045
  2. ZAPONEX [Suspect]
     Route: 048
     Dates: start: 20101026, end: 20101030
  3. FUROSEMIDE (FUROSEMIDE) [Suspect]
     Route: 048
  4. RAMIPRIL [Concomitant]
  5. DEPAKOTE [Concomitant]
  6. LEVOMEPROMAZINE [Concomitant]
  7. METFORMIN [Concomitant]
  8. SIMVASTATIN [Concomitant]

REACTIONS (5)
  - Leukopenia [None]
  - Neutrophil count decreased [None]
  - Platelet count decreased [None]
  - Mental disorder [None]
  - Treatment noncompliance [None]
